FAERS Safety Report 4960089-8 (Version None)
Quarter: 2006Q1

REPORT INFORMATION
  Report Type: 
  Country: None (occurrence: None)
  Receive Date: 20060331
  Receipt Date: 20000814
  Transmission Date: 20060701
  Serious: No
  Sender: FDA-Public Use
  Company Number: CA-MERCK-00088555M

PATIENT
  Age: 31 Year
  Sex: Female

DRUGS (2)
  1. PRINIVIL [Suspect]
     Indication: ESSENTIAL HYPERTENSION
     Route: 048
     Dates: start: 19940101, end: 20000101
  2. PRINIVIL [Suspect]
     Route: 048
     Dates: start: 20000101

REACTIONS (16)
  - BREECH PRESENTATION [None]
  - CAESAREAN SECTION [None]
  - CONGENITAL ANOMALY [None]
  - CONGENITAL NEPHROTIC SYNDROME [None]
  - DIALYSIS [None]
  - DRUG EXPOSURE DURING PREGNANCY [None]
  - DRUG TOXICITY [None]
  - EAR MALFORMATION [None]
  - HYPERKALAEMIA [None]
  - HYPOTENSION [None]
  - METABOLIC ACIDOSIS [None]
  - MULTI-ORGAN FAILURE [None]
  - OLIGOHYDRAMNIOS [None]
  - RESPIRATORY DISTRESS [None]
  - SEPSIS [None]
  - TWIN PREGNANCY [None]
